FAERS Safety Report 8524886-4 (Version None)
Quarter: 2012Q3

REPORT INFORMATION
  Report Type: 
  Country: None (occurrence: None)
  Receive Date: 20120720
  Receipt Date: 20120712
  Transmission Date: 20120928
  Serious: Yes (Hospitalization, Other)
  Sender: FDA-Public Use
  Company Number: US-009507513-1202USA03888

PATIENT

DRUGS (9)
  1. FOSAMAX [Suspect]
     Indication: OSTEOPOROSIS
     Route: 048
     Dates: start: 19990101
  2. FOSAMAX [Suspect]
     Dosage: 70 MG, UNK
     Route: 048
     Dates: start: 20080410, end: 20081003
  3. FOSAMAX [Suspect]
  4. FOSAMAX [Suspect]
  5. FOSAMAX [Suspect]
     Indication: OSTEOPENIA
     Dosage: 10 MG, UNK
     Route: 048
     Dates: start: 20000406, end: 20010505
  6. FOSAMAX [Suspect]
     Dosage: 70 MG, UNK
     Route: 048
     Dates: start: 20100225, end: 20100826
  7. FOSAMAX [Suspect]
     Dosage: 70 MG, UNK
     Route: 048
     Dates: start: 20081224, end: 20091203
  8. FOSAMAX [Suspect]
     Dosage: 70 MG, UNK
     Route: 048
     Dates: start: 20011011, end: 20080108
  9. FOSAMAX [Suspect]

REACTIONS (30)
  - DEPRESSION [None]
  - ANAEMIA [None]
  - LOW TURNOVER OSTEOPATHY [None]
  - PAIN [None]
  - AZOTAEMIA [None]
  - OSTEOARTHRITIS [None]
  - OEDEMA PERIPHERAL [None]
  - GASTROOESOPHAGEAL REFLUX DISEASE [None]
  - MUSCULOSKELETAL PAIN [None]
  - ARTHRITIS [None]
  - FEMUR FRACTURE [None]
  - HYPOKALAEMIA [None]
  - PUBIS FRACTURE [None]
  - CAROTID ARTERY STENOSIS [None]
  - ROTATOR CUFF SYNDROME [None]
  - CARDIAC MURMUR [None]
  - FACET JOINT SYNDROME [None]
  - HYPONATRAEMIA [None]
  - LEUKOCYTOSIS [None]
  - BLOOD PRESSURE INCREASED [None]
  - UTERINE DISORDER [None]
  - FALL [None]
  - SPINAL OSTEOARTHRITIS [None]
  - APPENDIX DISORDER [None]
  - SINUSITIS [None]
  - MITRAL VALVE INCOMPETENCE [None]
  - SCOLIOSIS [None]
  - TOOTH LOSS [None]
  - PAIN IN EXTREMITY [None]
  - ANXIETY [None]
